FAERS Safety Report 22536157 (Version 1)
Quarter: 2023Q2

REPORT INFORMATION
  Report Type: Spontaneous
  Country: US (occurrence: US)
  Receive Date: 20230608
  Receipt Date: 20230608
  Transmission Date: 20230721
  Serious: Yes (Hospitalization, Other)
  Sender: FDA-Public Use
  Company Number: US-AMRING PHARMACEUTICALS INC.-2023US002006

PATIENT

DRUGS (2)
  1. MESALAMINE RECTAL [Suspect]
     Active Substance: MESALAMINE
     Indication: Proctitis ulcerative
     Dosage: UNK
     Route: 065
  2. MESALAMINE [Suspect]
     Active Substance: MESALAMINE
     Indication: Proctitis ulcerative
     Dosage: UNK
     Route: 048

REACTIONS (4)
  - Shock haemorrhagic [Recovering/Resolving]
  - Haematochezia [Recovering/Resolving]
  - Drug hypersensitivity [Recovering/Resolving]
  - Proctalgia [Recovering/Resolving]
